FAERS Safety Report 9436020 (Version 2)
Quarter: 2013Q3

REPORT INFORMATION
  Report Type: Spontaneous
  Country: US (occurrence: US)
  Receive Date: 20130801
  Receipt Date: 20130820
  Transmission Date: 20140515
  Serious: No
  Sender: FDA-Public Use
  Company Number: US-009507513-1307USA015890

PATIENT
  Age: 48 Year
  Sex: Female

DRUGS (1)
  1. NEXPLANON [Suspect]
     Indication: CONTRACEPTION
     Dosage: 68 MG ROD
     Route: 059

REACTIONS (3)
  - Migraine [Not Recovered/Not Resolved]
  - Device kink [Not Recovered/Not Resolved]
  - Device breakage [Not Recovered/Not Resolved]
